FAERS Safety Report 8115230 (Version 3)
Quarter: 2014Q3

REPORT INFORMATION
  Report Type: Spontaneous
  Country: US (occurrence: US)
  Receive Date: 20110831
  Receipt Date: 20140707
  Transmission Date: 20150326
  Serious: Yes (Hospitalization, Other)
  Sender: FDA-Public Use
  Company Number: US-GLAXOSMITHKLINE-A0942769A

PATIENT
  Sex: Male

DRUGS (2)
  1. AVANDIA [Suspect]
     Active Substance: ROSIGLITAZONE MALEATE
     Indication: DIABETES MELLITUS
     Route: 048
     Dates: start: 2003, end: 2007
  2. ROSIGLITAZONE MALEATE. [Suspect]
     Active Substance: ROSIGLITAZONE MALEATE
     Indication: DIABETES MELLITUS
     Dosage: 8MG PER DAY
     Route: 048
     Dates: start: 200703, end: 200711

REACTIONS (6)
  - Pleural effusion [Unknown]
  - Cardiac failure congestive [Unknown]
  - Myocardial infarction [Unknown]
  - Ischaemic cardiomyopathy [Unknown]
  - Coronary artery bypass [Unknown]
  - Coronary artery disease [Unknown]
